FAERS Safety Report 6732653-7 (Version None)
Quarter: 2010Q2

REPORT INFORMATION
  Report Type: 
  Country: None (occurrence: None)
  Receive Date: 20100519
  Receipt Date: 20100518
  Transmission Date: 20101027
  Serious: Yes (Other)
  Sender: FDA-Public Use
  Company Number: US-WYE-H14183110

PATIENT
  Sex: Female
  Weight: 78.45 kg

DRUGS (2)
  1. ROBITUSSIN COUGH AND CHEST CONGESTION DM MAX [Suspect]
     Indication: SINUS CONGESTION
     Dosage: 2 TSP EVERY 1 DAY;  CUMULATIVE DOSE TO EVENT: 2 TSP
     Route: 048
     Dates: start: 20100307, end: 20100307
  2. ACETYLSALICYLIC ACID [Concomitant]
     Indication: PAIN
     Dosage: UNKNOWN, AS NEEDED
     Route: 048

REACTIONS (4)
  - BLOOD GLUCOSE INCREASED [None]
  - BLOOD PRESSURE INCREASED [None]
  - CEREBROVASCULAR ACCIDENT [None]
  - ISCHAEMIC CEREBRAL INFARCTION [None]
